FAERS Safety Report 5835884-3 (Version None)
Quarter: 2008Q3

REPORT INFORMATION
  Report Type: 
  Country: None (occurrence: None)
  Receive Date: 20080730
  Receipt Date: 20080111
  Transmission Date: 20090109
  Serious: Yes (Other)
  Sender: FDA-Public Use
  Company Number: 44211

PATIENT
  Age: 52 Year
  Sex: Female
  Weight: 83.4619 kg

DRUGS (1)
  1. PACLITAXEL [Suspect]
     Indication: OVARIAN CANCER
     Dosage: 322 MG/Q 34 /IV
     Route: 042
     Dates: start: 20080110

REACTIONS (2)
  - DYSPNOEA [None]
  - FLUSHING [None]
